FAERS Safety Report 5032604-X (Version None)
Quarter: 2006Q2

REPORT INFORMATION
  Report Type: 
  Country: None (occurrence: None)
  Receive Date: 20060620
  Receipt Date: 20060612
  Transmission Date: 20061013
  Serious: Yes (Death, Other)
  Sender: FDA-Public Use
  Company Number: 2006074663

PATIENT
  Age: 39 Year
  Sex: Male

DRUGS (4)
  1. ZOLOFT [Suspect]
     Indication: DEPRESSION
     Dosage: 100 MG (1 IN 1 D),
     Dates: end: 20051001
  2. HEROIN (DIAMORPHINE) [Suspect]
     Indication: ILL-DEFINED DISORDER
     Dosage: ILL-DEFINED DISORDER
  3. FLEXERIL [Suspect]
     Indication: ILL-DEFINED DISORDER
  4. ALCOHOL (ETHANOL) [Suspect]
     Indication: ILL-DEFINED DISORDER

REACTIONS (3)
  - BLOOD ALCOHOL INCREASED [None]
  - LIVER DISORDER [None]
  - MULTIPLE DRUG OVERDOSE INTENTIONAL [None]
